FAERS Safety Report 7464956-5 (Version None)
Quarter: 2011Q2

REPORT INFORMATION
  Report Type: 
  Country: None (occurrence: None)
  Receive Date: 20110509
  Receipt Date: 20100825
  Transmission Date: 20111010
  Serious: No
  Sender: FDA-Public Use
  Company Number: US-SANOFI-AVENTIS-2010SA052061

PATIENT
  Age: 44 Year
  Sex: Male

DRUGS (2)
  1. APIDRA [Suspect]
     Dosage: SLIDING SCALE DOSAGE WITH MEAL
     Route: 058
  2. OPTICLICK [Suspect]
     Dates: end: 20100801

REACTIONS (1)
  - ARTHRITIS [None]
